FAERS Safety Report 9266545 (Version 2)
Quarter: 2013Q2

REPORT INFORMATION
  Report Type: Report from Study
  Country: ES (occurrence: ES)
  Receive Date: 20130502
  Receipt Date: 20130506
  Transmission Date: 20140414
  Serious: Yes (Life-Threatening, Hospitalization)
  Sender: FDA-Public Use
  Company Number: ES-ROCHE-1187175

PATIENT
  Age: 80 Year
  Sex: Female
  Weight: 66.5 kg

DRUGS (18)
  1. TOCILIZUMAB [Suspect]
     Indication: RHEUMATOID ARTHRITIS
     Dosage: DATE OF MOST RECENT DOSE: 28/MAR/2013. LAST DOSE TAKEN: 8 MG/KG
     Route: 042
     Dates: start: 20120606
  2. NAPROSYN [Concomitant]
     Indication: RHEUMATOID ARTHRITIS
     Route: 048
     Dates: start: 20120209
  3. NAPROSYN [Concomitant]
     Indication: OSTEOARTHRITIS
  4. BESITRAN [Concomitant]
     Indication: DEPRESSION
     Route: 048
  5. PREDNISONA [Concomitant]
     Indication: RHEUMATOID ARTHRITIS
     Route: 048
     Dates: start: 20120306, end: 20120707
  6. PREDNISONA [Concomitant]
     Indication: OSTEOARTHRITIS
  7. NEXIUM [Concomitant]
     Indication: IMPAIRED GASTRIC EMPTYING
     Route: 048
  8. KALPRESS [Concomitant]
     Indication: HYPERTENSION
     Route: 048
     Dates: end: 20130201
  9. EUTIROX [Concomitant]
     Indication: HYPOTHYROIDISM
     Route: 048
     Dates: start: 2005
  10. NITRO-DUR [Concomitant]
     Indication: BUNDLE BRANCH BLOCK LEFT
     Dosage: PATCH
     Route: 062
  11. ROMILAR (SPAIN) [Concomitant]
     Indication: PROPHYLAXIS
     Route: 048
  12. ACFOL [Concomitant]
     Indication: PROPHYLAXIS
     Route: 048
     Dates: start: 20121025
  13. TORASEMIDA [Concomitant]
     Indication: RENAL FAILURE CHRONIC
     Route: 048
     Dates: start: 2009, end: 20130405
  14. TORASEMIDA [Concomitant]
     Route: 048
     Dates: start: 20130411
  15. MEIACT [Concomitant]
     Indication: NASOPHARYNGITIS
     Route: 048
     Dates: start: 20121227, end: 20130103
  16. ATORVASTATINA [Concomitant]
     Indication: RHEUMATOID ARTHRITIS
     Route: 048
     Dates: start: 20121221
  17. ELECOR [Concomitant]
     Route: 048
     Dates: start: 20130411
  18. CONDROSAN [Concomitant]
     Route: 048
     Dates: start: 20130405

REACTIONS (2)
  - Cardiac failure [Recovered/Resolved with Sequelae]
  - Cardiac failure [Recovered/Resolved]
